FAERS Safety Report 7690167-4 (Version None)
Quarter: 2011Q3

REPORT INFORMATION
  Report Type: 
  Country: None (occurrence: None)
  Receive Date: 20110818
  Receipt Date: 20110808
  Transmission Date: 20111222
  Serious: Yes (Hospitalization)
  Sender: FDA-Public Use
  Company Number: US-JNJFOC-20110706801

PATIENT
  Sex: Male
  Weight: 42.3 kg

DRUGS (6)
  1. REMICADE [Suspect]
     Route: 042
     Dates: start: 20110702
  2. MERCAPTOPURINE [Suspect]
     Indication: PRODUCT USED FOR UNKNOWN INDICATION
  3. MESALAMINE [Suspect]
     Dates: end: 20110709
  4. METRONIDAZOLE [Concomitant]
     Dates: start: 20110727
  5. MESALAMINE [Suspect]
     Indication: PRODUCT USED FOR UNKNOWN INDICATION
     Dates: start: 20110725, end: 20110701
  6. REMICADE [Suspect]
     Indication: COLITIS ULCERATIVE
     Route: 042
     Dates: start: 20110411

REACTIONS (1)
  - PANCREATITIS [None]
